FAERS Safety Report 18960250 (Version 1)
Quarter: 2021Q1

REPORT INFORMATION
  Report Type: Spontaneous
  Country: US (occurrence: US)
  Receive Date: 20210302
  Receipt Date: 20210302
  Transmission Date: 20210420
  Serious: No
  Sender: FDA-Public Use
  Company Number: US-MYLANLABS-2021M1010400

PATIENT
  Sex: Female

DRUGS (1)
  1. XULANE [Suspect]
     Active Substance: ETHINYL ESTRADIOL\NORELGESTROMIN
     Indication: CONTRACEPTION
     Dosage: 150/35 MICROGRAM
     Route: 062
     Dates: start: 201810

REACTIONS (5)
  - Application site erythema [Unknown]
  - Application site irritation [Unknown]
  - Application site pain [Unknown]
  - Application site pruritus [Unknown]
  - Application site urticaria [Unknown]

NARRATIVE: CASE EVENT DATE: 2021
